FAERS Safety Report 9173868 (Version 1)
Quarter: 2013Q1

REPORT INFORMATION
  Report Type: Spontaneous
  Country: US (occurrence: US)
  Receive Date: 20130320
  Receipt Date: 20130320
  Transmission Date: 20140127
  Serious: Yes (Hospitalization, Other)
  Sender: FDA-Public Use
  Company Number: US-SANOFI-AVENTIS-2013SA027770

PATIENT
  Age: 81 Year
  Sex: Male
  Weight: 89.5 kg

DRUGS (12)
  1. MULTAQ [Suspect]
     Indication: ATRIAL FIBRILLATION
     Route: 048
     Dates: start: 20121224
  2. XARELTO [Suspect]
     Indication: ATRIAL FIBRILLATION
     Route: 048
     Dates: start: 20121224, end: 20130111
  3. XARELTO [Suspect]
     Indication: CEREBROVASCULAR ACCIDENT PROPHYLAXIS
     Route: 048
     Dates: start: 20121224, end: 20130111
  4. IBUPROFEN [Suspect]
     Indication: ARTHRALGIA
     Route: 065
  5. NAPROXEN SODIUM [Suspect]
     Indication: ARTHRALGIA
     Route: 065
  6. ASPIRIN [Suspect]
     Indication: ARTHRALGIA
     Route: 065
  7. ASPIRIN [Suspect]
     Indication: PROPHYLAXIS
     Route: 065
  8. FERROUS SULFATE [Concomitant]
     Route: 048
  9. LOVASTATIN [Concomitant]
     Dosage: IN ONE HOUR OF SLEEP
     Route: 048
  10. METOPROLOL TARTRATE [Concomitant]
  11. PROTONIX [Concomitant]
     Route: 048
  12. ALPRAZOLAM [Concomitant]
     Dosage: IN ONE HOUR OF SLEEP
     Route: 048

REACTIONS (3)
  - Gastrointestinal haemorrhage [Recovering/Resolving]
  - Melaena [Recovering/Resolving]
  - Duodenal ulcer [Recovering/Resolving]
